FAERS Safety Report 6505570-5 (Version None)
Quarter: 2009Q4

REPORT INFORMATION
  Report Type: 
  Country: None (occurrence: None)
  Receive Date: 20091218
  Receipt Date: 20091214
  Transmission Date: 20100525
  Serious: Yes (Death)
  Sender: FDA-Public Use
  Company Number: US-CELGENEUS-163-21880-09121159

PATIENT
  Sex: Male

DRUGS (1)
  1. REVLIMID [Suspect]
     Indication: MYELODYSPLASTIC SYNDROME
     Route: 048
     Dates: start: 20060918

REACTIONS (5)
  - COLITIS [None]
  - DEATH [None]
  - HEART RATE INCREASED [None]
  - PNEUMONIA ASPIRATION [None]
  - URINARY TRACT INFECTION [None]
